FAERS Safety Report 17997252 (Version 5)
Quarter: 2020Q3

REPORT INFORMATION
  Report Type: Spontaneous
  Country: US (occurrence: US)
  Receive Date: 20200708
  Receipt Date: 20200915
  Transmission Date: 20201103
  Serious: Yes (Hospitalization, Other)
  Sender: FDA-Public Use
  Company Number: US-PFIZER INC-2020241653

PATIENT
  Age: 56 Year
  Sex: Female
  Weight: 68.04 kg

DRUGS (1)
  1. INLYTA [Suspect]
     Active Substance: AXITINIB
     Indication: RENAL CANCER
     Dosage: 5 MG, 2X/DAY
     Route: 048

REACTIONS (9)
  - Immune system disorder [Unknown]
  - Cerebrovascular accident [Unknown]
  - Dysphemia [Unknown]
  - Headache [Unknown]
  - Anxiety [Unknown]
  - Intracranial aneurysm [Unknown]
  - Chest discomfort [Unknown]
  - Crying [Unknown]
  - Incontinence [Unknown]

NARRATIVE: CASE EVENT DATE: 20200630
